FAERS Safety Report 22202616 (Version 5)
Quarter: 2023Q2

REPORT INFORMATION
  Report Type: Report from Study
  Country: US (occurrence: US)
  Receive Date: 20230412
  Receipt Date: 20230630
  Transmission Date: 20230722
  Serious: No
  Sender: FDA-Public Use
  Company Number: US-002147023-NVSC2023US084193

PATIENT
  Age: 68 Year
  Sex: Male

DRUGS (1)
  1. COSENTYX [Suspect]
     Active Substance: SECUKINUMAB
     Indication: Psoriasis
     Dosage: 300 MG, QMO
     Route: 030
     Dates: start: 2018, end: 20230115

REACTIONS (5)
  - Psoriasis [Not Recovered/Not Resolved]
  - Pruritus [Unknown]
  - Pain [Unknown]
  - Skin irritation [Unknown]
  - Incorrect route of product administration [Unknown]

NARRATIVE: CASE EVENT DATE: 20230115
